FAERS Safety Report 24675112 (Version 1)
Quarter: 2024Q4

REPORT INFORMATION
  Report Type: Spontaneous
  Country: TR (occurrence: TR)
  Receive Date: 20241128
  Receipt Date: 20241128
  Transmission Date: 20250114
  Serious: Yes (Other)
  Sender: ACCORD
  Company Number: TR-MLMSERVICE-20160824-0401539-1

PATIENT
  Age: 27 Year
  Sex: Male

DRUGS (2)
  1. OXYBUTYNIN [Suspect]
     Active Substance: OXYBUTYNIN
     Dosage: INITIALLY TOOK 1-2 TABLETS A DAY
  2. OXYBUTYNIN [Suspect]
     Active Substance: OXYBUTYNIN
     Indication: Product used for unknown indication
     Dosage: 20-30 TABLETS A DAY (100-150 MG)

REACTIONS (4)
  - Drug abuse [Unknown]
  - Dry mouth [Unknown]
  - Anuria [Unknown]
  - Constipation [Unknown]
